FAERS Safety Report 13656085 (Version 2)
Quarter: 2017Q2

REPORT INFORMATION
  Report Type: Spontaneous
  Country: VN (occurrence: VN)
  Receive Date: 20170615
  Receipt Date: 20170622
  Transmission Date: 20170830
  Serious: Yes (Hospitalization)
  Sender: FDA-Public Use
  Company Number: VN-ROCHE-1950885

PATIENT
  Age: 53 Year
  Sex: Male

DRUGS (1)
  1. ACTILYSE [Suspect]
     Active Substance: ALTEPLASE
     Indication: ISCHAEMIC STROKE
     Dosage: DOSE: 0.9 MG/KG. 10% BOLUS IV,
     Route: 042
     Dates: start: 201704, end: 201704

REACTIONS (3)
  - Vascular occlusion [Recovered/Resolved]
  - Facial paralysis [Unknown]
  - Hemiparesis [Unknown]

NARRATIVE: CASE EVENT DATE: 201704
